FAERS Safety Report 5748659-0 (Version None)
Quarter: 2008Q2

REPORT INFORMATION
  Report Type: 
  Country: None (occurrence: None)
  Receive Date: 20080521
  Receipt Date: 20080513
  Transmission Date: 20081010
  Serious: Yes (Hospitalization)
  Sender: FDA-Public Use
  Company Number: WAES0804GBR00023

PATIENT
  Age: 80 Year
  Sex: Male

DRUGS (12)
  1. COZAAR [Suspect]
     Indication: CARDIAC FAILURE CONGESTIVE
     Dosage: PO
     Route: 048
     Dates: start: 20040210
  2. ASPIRIN [Concomitant]
  3. CARVEDILOL [Concomitant]
  4. DIGOXIN [Concomitant]
  5. DOMPERIDONE [Concomitant]
  6. FUROSEMDE [Concomitant]
  7. GLIMEPIRIDE [Concomitant]
  8. ISOSORBIDE MONONITRATE [Concomitant]
  9. LANSOPRAZOLE [Concomitant]
  10. POLYETHYLENE GLYCOL [Concomitant]
  11. SIMVASTATIN [Concomitant]
  12. SPIRONOLACTONE [Concomitant]

REACTIONS (9)
  - ANAEMIA [None]
  - CONSTIPATION [None]
  - DIABETES MELLITUS [None]
  - DIARRHOEA [None]
  - ELECTROCARDIOGRAM ST SEGMENT DEPRESSION [None]
  - HAEMORRHAGE [None]
  - INTESTINAL FUNCTIONAL DISORDER [None]
  - LEFT VENTRICULAR DYSFUNCTION [None]
  - MYOCARDIAL ISCHAEMIA [None]
